FAERS Safety Report 12924327 (Version 1)
Quarter: 2016Q4

REPORT INFORMATION
  Report Type: Spontaneous
  Country: US (occurrence: US)
  Receive Date: 20161109
  Receipt Date: 20161109
  Transmission Date: 20170207
  Serious: No
  Sender: FDA-Public Use
  Company Number: US-BAYER-2016-212627

PATIENT
  Age: 48 Year
  Sex: Female

DRUGS (1)
  1. FINACEA [Suspect]
     Active Substance: AZELAIC ACID
     Indication: ROSACEA
     Dosage: UNK UNK, BID MORNING AND NIGHT, BUT THE FOLLOWING NIGHT CONSUMER DID NOT USED IT
     Dates: start: 201610, end: 201610

REACTIONS (4)
  - Rash [Recovered/Resolved]
  - Acne [Recovered/Resolved]
  - Hypersensitivity [Recovered/Resolved]
  - Therapeutic product ineffective [None]

NARRATIVE: CASE EVENT DATE: 201610
